FAERS Safety Report 20465731 (Version 1)
Quarter: 2022Q1

REPORT INFORMATION
  Report Type: Spontaneous
  Country: AU (occurrence: AU)
  Receive Date: 20220212
  Receipt Date: 20220212
  Transmission Date: 20220424
  Serious: Yes (Hospitalization)
  Sender: FDA-Public Use
  Company Number: AU-TEVA-2022-AU-2007198

PATIENT
  Age: 41 Year
  Sex: Female

DRUGS (1)
  1. COPAXONE [Suspect]
     Active Substance: GLATIRAMER ACETATE
     Indication: Multiple sclerosis
     Route: 058
     Dates: start: 20131212

REACTIONS (8)
  - Chest discomfort [Unknown]
  - Defaecation urgency [Unknown]
  - Dyspnoea [Unknown]
  - Erythema [Unknown]
  - Head discomfort [Unknown]
  - Pharyngeal oedema [Unknown]
  - Urinary tract infection [Unknown]
  - Vomiting [Unknown]
